FAERS Safety Report 15994023 (Version 22)
Quarter: 2020Q2

REPORT INFORMATION
  Report Type: Spontaneous
  Country: CA (occurrence: CA)
  Receive Date: 20190222
  Receipt Date: 20200629
  Transmission Date: 20200713
  Serious: Yes (Hospitalization, Other)
  Sender: FDA-Public Use
  Company Number: CA-CELLTRION INC.-2018CA022620

PATIENT

DRUGS (29)
  1. INFLECTRA [Suspect]
     Active Substance: INFLIXIMAB-DYYB
     Dosage: 600 MG, EVERY 4 WEEKS
     Route: 042
     Dates: start: 20191228
  2. INFLECTRA [Suspect]
     Active Substance: INFLIXIMAB-DYYB
     Dosage: 300 MG, EVERY 4 WEEKS
     Route: 042
     Dates: start: 20200221
  3. IMURAN [Concomitant]
     Active Substance: AZATHIOPRINE
     Dosage: 50 MG, UNK
     Route: 048
  4. TRAMACET [Concomitant]
     Active Substance: ACETAMINOPHEN\TRAMADOL
     Dosage: UNK
  5. INFLECTRA [Suspect]
     Active Substance: INFLIXIMAB-DYYB
     Dosage: 300 MG, EVERY 4 WEEKS
     Route: 042
     Dates: start: 20200623
  6. TRAMACET [Concomitant]
     Active Substance: ACETAMINOPHEN\TRAMADOL
     Dosage: UNK, AS NEEDED
  7. INFLECTRA [Suspect]
     Active Substance: INFLIXIMAB-DYYB
     Dosage: 300 MG, (5MG/KG, AT 2, 6, THEN EVERY 8 WEEKS
     Route: 042
     Dates: start: 201810
  8. INFLECTRA [Suspect]
     Active Substance: INFLIXIMAB-DYYB
     Dosage: 300 MG, AT 2, 6, THEN EVERY 8 WEEKS
     Route: 042
     Dates: start: 20190924, end: 20190924
  9. INFLECTRA [Suspect]
     Active Substance: INFLIXIMAB-DYYB
     Dosage: 300 MG, EVERY 4 WEEKS
     Route: 042
     Dates: start: 20200124
  10. MEZAVANT [Concomitant]
     Active Substance: MESALAMINE
     Dosage: 4.8 G, DAILY
     Route: 048
  11. REMICADE [Concomitant]
     Active Substance: INFLIXIMAB
     Dosage: 600 MG, UNK
     Dates: start: 20180921, end: 20180921
  12. INFLECTRA [Suspect]
     Active Substance: INFLIXIMAB-DYYB
     Dosage: 300 MG, AT 2, 6, THEN EVERY 8 WEEKS
     Route: 042
     Dates: start: 20181212, end: 20181212
  13. INFLECTRA [Suspect]
     Active Substance: INFLIXIMAB-DYYB
     Dosage: 300 MG, AT 2, 6, THEN EVERY 8 WEEKS
     Route: 042
     Dates: start: 20190206, end: 20190206
  14. INFLECTRA [Suspect]
     Active Substance: INFLIXIMAB-DYYB
     Dosage: 600 MG (RESCUE DOSE THAN EVERY 4 WEEKS)
     Route: 042
     Dates: start: 20191129, end: 20200124
  15. ACETAMINOPHEN. [Concomitant]
     Active Substance: ACETAMINOPHEN
     Indication: PREMEDICATION
     Dosage: 650 MG
  16. INFLECTRA [Suspect]
     Active Substance: INFLIXIMAB-DYYB
     Dosage: 300 MG, AT 2, 6, THEN EVERY 8 WEEKS
     Route: 042
     Dates: start: 20180907, end: 20191112
  17. INFLECTRA [Suspect]
     Active Substance: INFLIXIMAB-DYYB
     Dosage: 300 MG, AT 2, 6, THEN EVERY 8 WEEKS
     Route: 042
     Dates: start: 20191112, end: 20191112
  18. ACETAMINOPHEN. [Concomitant]
     Active Substance: ACETAMINOPHEN
     Dosage: 650 MG
     Dates: start: 20200623, end: 20200623
  19. INFLECTRA [Suspect]
     Active Substance: INFLIXIMAB-DYYB
     Indication: COLITIS ULCERATIVE
     Dosage: 600 MG, (10 MG/KG 1ST DOSE), AT 0, 2, 6, THEN EVERY 8 WEEKS
     Route: 042
     Dates: start: 20180907
  20. INFLECTRA [Suspect]
     Active Substance: INFLIXIMAB-DYYB
     Dosage: 300 MG, EVERY 4 WEEKS
     Route: 042
     Dates: start: 20200418
  21. CORTIMENT [BUDESONIDE] [Concomitant]
     Active Substance: BUDESONIDE
     Dosage: 9 MG, UNK
     Route: 048
  22. SERTRALINE [Concomitant]
     Active Substance: SERTRALINE HYDROCHLORIDE
     Dosage: UNK (1 (FORM AND FREQUENCY UNSPECIFIED)
     Route: 065
  23. INFLECTRA [Suspect]
     Active Substance: INFLIXIMAB-DYYB
     Dosage: 300 MG, EVERY 4 WEEKS
     Route: 042
     Dates: start: 20200320
  24. PREDNISONE. [Concomitant]
     Active Substance: PREDNISONE
     Indication: COLITIS ULCERATIVE
     Dosage: 40 MG, DAILY
     Route: 048
  25. REMICADE [Concomitant]
     Active Substance: INFLIXIMAB
     Dosage: UNK, EVERY 8 WEEKS
  26. DIPHENHYDRAMINE. [Concomitant]
     Active Substance: DIPHENHYDRAMINE
     Indication: PREMEDICATION
     Dosage: 50 MG
  27. DIPHENHYDRAMINE. [Concomitant]
     Active Substance: DIPHENHYDRAMINE
     Dosage: 50 MG
     Dates: start: 20200623, end: 20200623
  28. INFLECTRA [Suspect]
     Active Substance: INFLIXIMAB-DYYB
     Dosage: 300 MG, AT 2, 6, THEN EVERY 8 WEEKS
     Route: 042
     Dates: start: 20190403, end: 20190403
  29. APO-AZATHIOPRINE [Concomitant]
     Active Substance: AZATHIOPRINE
     Dosage: 50 MG, DAILY
     Route: 048

REACTIONS (22)
  - Depression [Unknown]
  - Faecal calprotectin increased [Unknown]
  - Intentional product use issue [Unknown]
  - Inappropriate schedule of product administration [Unknown]
  - Intentional product use issue [Unknown]
  - Maternal exposure during pregnancy [Unknown]
  - Diarrhoea [Not Recovered/Not Resolved]
  - Drug ineffective [Unknown]
  - Off label use [Unknown]
  - Pus in stool [Unknown]
  - Heart rate abnormal [Unknown]
  - Condition aggravated [Recovered/Resolved]
  - Alcohol abuse [Unknown]
  - Weight decreased [Recovered/Resolved]
  - Blood pressure fluctuation [Unknown]
  - Product use issue [Unknown]
  - Malaise [Unknown]
  - Headache [Unknown]
  - Clostridium difficile infection [Not Recovered/Not Resolved]
  - Abortion spontaneous [Unknown]
  - Body temperature fluctuation [Unknown]
  - Blood iron decreased [Unknown]

NARRATIVE: CASE EVENT DATE: 201809
